FAERS Safety Report 24968351 (Version 3)
Quarter: 2025Q1

REPORT INFORMATION
  Report Type: Report from Study
  Country: KR (occurrence: KR)
  Receive Date: 20250214
  Receipt Date: 20250324
  Transmission Date: 20250408
  Serious: Yes (Other)
  Sender: AKEBIA THERAPEUTICS
  Company Number: KR-KERYX BIOPHARMACEUTICALS INC.-KR-AKEB-25-000064

PATIENT
  Age: 38 Year
  Sex: Male
  Weight: 133.4 kg

DRUGS (17)
  1. FERRIC CITRATE ANHYDROUS [Suspect]
     Active Substance: FERRIC CITRATE ANHYDROUS
     Indication: Hyperphosphataemia
     Dosage: 4000 MG(DAILY DOSE),2 TIMES PER DAY;
     Route: 048
     Dates: start: 20240710, end: 20240724
  2. FERRIC CITRATE ANHYDROUS [Suspect]
     Active Substance: FERRIC CITRATE ANHYDROUS
     Dosage: 4000 MILLIGRAM, TID
     Route: 048
     Dates: start: 20240710, end: 20240723
  3. LIPITOR [Concomitant]
     Active Substance: ATORVASTATIN CALCIUM
     Indication: Product used for unknown indication
     Route: 065
     Dates: start: 20230925
  4. CINACALCET HYDROCHLORIDE [Concomitant]
     Active Substance: CINACALCET HYDROCHLORIDE
     Indication: Product used for unknown indication
     Route: 065
     Dates: start: 20230925
  5. MUKARAN [Concomitant]
     Indication: Product used for unknown indication
     Route: 065
     Dates: start: 20240701
  6. NIFEDIX [Concomitant]
     Indication: Product used for unknown indication
     Route: 065
     Dates: start: 20240320
  7. EPOETIN ALFA [Concomitant]
     Active Substance: ERYTHROPOIETIN
     Indication: Product used for unknown indication
     Route: 065
     Dates: start: 20240607
  8. FERRIC POLYSACCHARIDE COMPLEX [Concomitant]
     Active Substance: FERRIC POLYSACCHARIDE COMPLEX
     Indication: Product used for unknown indication
     Route: 065
     Dates: start: 20240619
  9. RINOEBASTEL [Concomitant]
     Indication: Product used for unknown indication
     Route: 065
     Dates: start: 20240701
  10. AMLODIPINE BESYLATE\OLMESARTAN MEDOXOMIL [Concomitant]
     Active Substance: AMLODIPINE BESYLATE\OLMESARTAN MEDOXOMIL
     Indication: Product used for unknown indication
     Route: 065
     Dates: start: 20230614
  11. NEROMIN [Concomitant]
     Indication: Product used for unknown indication
     Route: 065
     Dates: start: 20171027
  12. FEBUXOSTAT [Concomitant]
     Active Substance: FEBUXOSTAT
     Indication: Product used for unknown indication
     Route: 065
     Dates: start: 20180319
  13. LACTUSE [Concomitant]
     Indication: Product used for unknown indication
     Route: 065
     Dates: start: 20240708
  14. FOSRENOL [Concomitant]
     Active Substance: LANTHANUM CARBONATE
     Indication: Product used for unknown indication
     Route: 065
     Dates: start: 20240607, end: 20240711
  15. INVELA [Concomitant]
     Indication: Product used for unknown indication
     Route: 065
     Dates: start: 20240513, end: 20240710
  16. ARANESP [Concomitant]
     Active Substance: DARBEPOETIN ALFA
     Indication: Product used for unknown indication
     Route: 065
     Dates: start: 20240415
  17. ERYTHROPOIETIN [Concomitant]
     Active Substance: ERYTHROPOIETIN
     Indication: Product used for unknown indication
     Route: 065
     Dates: start: 20240513

REACTIONS (2)
  - Melaena [Recovering/Resolving]
  - Faeces discoloured [Recovering/Resolving]

NARRATIVE: CASE EVENT DATE: 20240722
